FAERS Safety Report 4753268-6 (Version None)
Quarter: 2005Q3

REPORT INFORMATION
  Report Type: 
  Country: None (occurrence: None)
  Receive Date: 20050824
  Receipt Date: 20050816
  Transmission Date: 20060218
  Serious: Yes (Death)
  Sender: FDA-Public Use
  Company Number: 216937

PATIENT
  Age: 74 Year
  Sex: Male
  Weight: 77.6 kg

DRUGS (27)
  1. AVASTIN [Suspect]
     Indication: RENAL CELL CARCINOMA STAGE UNSPECIFIED
     Dosage: 745 MG, INTRAVENOUS
     Route: 042
     Dates: start: 20050427, end: 20050726
  2. ERLOTINIB(ERLOTINIB) TABLET, 100MG [Suspect]
     Indication: RENAL CELL CARCINOMA STAGE UNSPECIFIED
     Dosage: 100 MG , ORAL
     Route: 048
     Dates: start: 20050427, end: 20050808
  3. GLEEVEC [Suspect]
     Indication: RENAL CELL CARCINOMA STAGE UNSPECIFIED
     Dosage: 300 MG, ORAL
     Route: 048
     Dates: start: 20050427, end: 20050808
  4. MORPHINE [Concomitant]
  5. MEGACE [Concomitant]
  6. PERCOCET [Concomitant]
  7. XANAX [Concomitant]
  8. PHENERGAN [Concomitant]
  9. FLONASE [Concomitant]
  10. CARDIZEM [Concomitant]
  11. ZOCOR [Concomitant]
  12. TOPROL-XL [Concomitant]
  13. ATIVAN [Concomitant]
  14. CLINDAMYCIN [Concomitant]
  15. METHYLPHENIDATE HCL [Concomitant]
  16. BACLOFEN [Concomitant]
  17. HYDROCORTISONE CREAM (HYDROCORTISONE) [Concomitant]
  18. REGLAN [Concomitant]
  19. ZOFRAN [Concomitant]
  20. BAKING SODA/SALT (SODIUM BICARBONATE, SODIUM CHLORIDE) [Concomitant]
  21. MAGIC MOUTHWASH [Concomitant]
  22. NEXIUM [Concomitant]
  23. GAS-X (SIMETHICONE) [Concomitant]
  24. BENADRYL [Concomitant]
  25. ALBUTEROL [Concomitant]
  26. IMODIUM [Concomitant]
  27. MS CONTIN [Concomitant]

REACTIONS (9)
  - ASTHENIA [None]
  - BILIARY TRACT DISORDER [None]
  - BLOOD CREATININE INCREASED [None]
  - ELECTROCARDIOGRAM QT PROLONGED [None]
  - ENTERITIS [None]
  - GENERAL PHYSICAL HEALTH DETERIORATION [None]
  - INTESTINAL PERFORATION [None]
  - PNEUMATOSIS [None]
  - SEPSIS [None]
